FAERS Safety Report 13542986 (Version 1)
Quarter: 2017Q2

REPORT INFORMATION
  Report Type: Spontaneous
  Country: US (occurrence: US)
  Receive Date: 20170513
  Receipt Date: 20170513
  Transmission Date: 20170830
  Serious: No
  Sender: FDA-Public Use
  Company Number: US-TEVA-766609ACC

PATIENT
  Age: 37 Year
  Sex: Male

DRUGS (8)
  1. BIOTIN [Concomitant]
     Active Substance: BIOTIN
  2. COPAXONE [Suspect]
     Active Substance: GLATIRAMER ACETATE
     Indication: MULTIPLE SCLEROSIS
     Route: 058
     Dates: start: 20170315, end: 201704
  3. TEMAZEPAM. [Concomitant]
     Active Substance: TEMAZEPAM
  4. VITAMIN D [Concomitant]
     Active Substance: CHOLECALCIFEROL
  5. PREDNISONE. [Concomitant]
     Active Substance: PREDNISONE
  6. CENTRUM [Concomitant]
     Active Substance: VITAMINS
  7. TURMERIC [Concomitant]
     Active Substance: HERBALS\TURMERIC
  8. GABAPENTIN. [Concomitant]
     Active Substance: GABAPENTIN

REACTIONS (3)
  - Burning sensation [Unknown]
  - Pruritus [Not Recovered/Not Resolved]
  - Urticaria [Unknown]

NARRATIVE: CASE EVENT DATE: 20170416
